FAERS Safety Report 10740869 (Version 4)
Quarter: 2017Q1

REPORT INFORMATION
  Report Type: Spontaneous
  Country: US (occurrence: US)
  Receive Date: 20150127
  Receipt Date: 20170228
  Transmission Date: 20170428
  Serious: No
  Sender: FDA-Public Use
  Company Number: US-PFIZER INC-2015034417

PATIENT
  Age: 65 Year
  Sex: Female

DRUGS (20)
  1. FOSAMAX [Concomitant]
     Active Substance: ALENDRONATE SODIUM
     Dosage: 70 MG, DAILY (TAKE 1 TAB (70 MG) BY MOUTH EVERY 7 DAYS- ORAL)
     Route: 048
  2. ALCOHOL WIPE [Concomitant]
     Active Substance: ISOPROPYL ALCOHOL
     Dosage: UNK UNK, AS NEEDED (APPLY 1 PACKAGE TOPICALLY 3 TIMES DAILY AS NEEDED)
     Route: 061
  3. PERCOCET [Concomitant]
     Active Substance: ACETAMINOPHEN\OXYCODONE HYDROCHLORIDE
     Indication: PAIN
     Dosage: UNK UNK, AS NEEDED [OXYCODONE 10 MG]/[ACETAMINOPHEN 325 MG];TAKE 1 TAB 3 TIMES DAILY AS NEEDED
     Route: 048
  4. PROZAC [Concomitant]
     Active Substance: FLUOXETINE HYDROCHLORIDE
     Dosage: 60 MG, DAILY (THREE TABS DAILY)
  5. ZESTRIL [Concomitant]
     Active Substance: LISINOPRIL
     Dosage: 5 MG, DAILY
     Route: 048
  6. DALIRESP [Concomitant]
     Active Substance: ROFLUMILAST
     Indication: CHRONIC OBSTRUCTIVE PULMONARY DISEASE
     Dosage: 500 UG, DAILY
     Route: 048
  7. LYRICA [Suspect]
     Active Substance: PREGABALIN
     Dosage: 225 MG, 3X/DAY
     Route: 048
  8. PROVENTIL [Concomitant]
     Active Substance: ALBUTEROL
     Dosage: 2.5 MG, 4X/DAY ((2.5 MG/3 ML) 0.083% NEBULIZER SOLUTION; INHALE 2.5 MG BY MOUTH 4 TIMES DAILY)
     Route: 055
  9. WELLBUTRIN XL [Concomitant]
     Active Substance: BUPROPION HYDROCHLORIDE
     Dosage: 300 MG, 1X/DAY (TAKE 1 TAB (300 MG) BY MOUTH EVERY MORNING)
     Route: 048
  10. PRINIVIL [Concomitant]
     Active Substance: LISINOPRIL
     Dosage: 5 MG, DAILY
     Route: 048
  11. GLUCOPHAGE [Concomitant]
     Active Substance: METFORMIN HYDROCHLORIDE
     Dosage: 1000 MG, 2X/DAY WITH MEALS
     Route: 048
  12. THEO-24 [Concomitant]
     Active Substance: THEOPHYLLINE ANHYDROUS
     Dosage: 400 MG, DAILY
     Route: 048
  13. LYRICA [Suspect]
     Active Substance: PREGABALIN
     Indication: NEUROPATHY PERIPHERAL
     Dosage: 25 MG, 3X/DAY
     Route: 048
  14. FEMARA [Concomitant]
     Active Substance: LETROZOLE
     Dosage: 2.5 MG, DAILY
     Route: 048
  15. HELIUM W/OXYGEN [Concomitant]
     Dosage: UNK UNK, AS NEEDED (INHALE 3 L/MIN BY MOUTH AT BEDTIME AND AS NEEDED)
  16. PROTONIX [Concomitant]
     Active Substance: PANTOPRAZOLE SODIUM
     Dosage: 40 MG, DAILY
     Route: 048
  17. BROVANA [Concomitant]
     Active Substance: ARFORMOTEROL TARTRATE
     Dosage: 15 UG, 2X/DAY (15 MCG/2ML NEBULIZER SOLUTION; TAKE 15 MCG BY NEBULIZATION 2 TIMES DAILY)
  18. PULMICORT TURBUHALER [Concomitant]
     Active Substance: BUDESONIDE
     Dosage: 500 UG, 2X/DAY (0.5 MG/2ML NEBULIZER SUSPENSION; TAKE 500 MCG BY NEBULIZATION 2 TIMES DAILY)
  19. VITAMIN D3 [Concomitant]
     Active Substance: CHOLECALCIFEROL
     Dosage: 2000 IU, DAILY
     Route: 048
  20. KLONOPIN [Concomitant]
     Active Substance: CLONAZEPAM
     Dosage: 0.25 MG, 1X/DAY AT BEDTIME
     Route: 048

REACTIONS (2)
  - Pain in extremity [Unknown]
  - Pain [Unknown]
